FAERS Safety Report 10258446 (Version 7)
Quarter: 2014Q3

REPORT INFORMATION
  Report Type: Spontaneous
  Country: JP (occurrence: JP)
  Receive Date: 20140625
  Receipt Date: 20140916
  Transmission Date: 20150326
  Serious: Yes (Death, Life-Threatening)
  Sender: FDA-Public Use
  Company Number: JP-B.I. PHARMACEUTICALS,INC./RIDGEFIELD-2014-BI-25119NB

PATIENT
  Age: 72 Year
  Sex: Female
  Weight: 45.5 kg

DRUGS (13)
  1. MINIPRESS [Concomitant]
     Active Substance: PRAZOSIN HYDROCHLORIDE
     Indication: HYPERTENSION
     Dosage: 3 ANZ
     Route: 048
     Dates: start: 20140520
  2. CASANMIL [Concomitant]
     Indication: HYPERTENSION
     Dosage: 5 ANZ
     Route: 048
     Dates: start: 20140520
  3. BUFFERIN [Concomitant]
     Active Substance: ASPIRIN
     Indication: PRODUCT USED FOR UNKNOWN INDICATION
     Dosage: 330 MG
     Route: 048
     Dates: start: 20140520
  4. EUGLUCON [Suspect]
     Active Substance: GLYBURIDE
     Indication: DIABETES MELLITUS
     Dosage: 10 MG
     Route: 048
     Dates: start: 20140520
  5. VOGLIBOSE [Suspect]
     Active Substance: VOGLIBOSE
     Indication: DIABETES MELLITUS
     Dosage: 0.9 MG
     Route: 048
     Dates: start: 20140520
  6. RIZE [Concomitant]
     Active Substance: CLOTIAZEPAM
     Indication: ANXIETY DISORDER
     Dosage: 3 ANZ
     Route: 048
     Dates: start: 20140520
  7. ATORVASTATIN [Concomitant]
     Active Substance: ATORVASTATIN
     Indication: HYPERLIPIDAEMIA
     Dosage: 1 ANZ
     Route: 048
     Dates: start: 20140520
  8. PURSENNID [Concomitant]
     Active Substance: SENNOSIDES A AND B CALCIUM
     Indication: CONSTIPATION
     Dosage: 2 ANZ
     Route: 048
     Dates: start: 20140520
  9. GILOTRIF [Suspect]
     Active Substance: AFATINIB
     Indication: NON-SMALL CELL LUNG CANCER
     Dosage: 40 MG
     Route: 048
     Dates: start: 20140521, end: 201407
  10. PODONIN-S [Concomitant]
     Indication: GASTRITIS
     Dosage: 2 G
     Route: 048
     Dates: start: 20140520
  11. YM [Concomitant]
     Indication: GASTRITIS
     Dosage: 3 G
     Route: 048
     Dates: start: 20140520
  12. MAGNESIUM OXIDE. [Concomitant]
     Active Substance: MAGNESIUM OXIDE
     Indication: CONSTIPATION
     Dosage: 1 G
     Route: 048
     Dates: start: 20140520
  13. SENNA [Concomitant]
     Active Substance: SENNA LEAF\SENNOSIDES\SENNOSIDES A AND B
     Indication: CONSTIPATION
     Dosage: 1 G
     Route: 048
     Dates: start: 20140520

REACTIONS (5)
  - Decreased appetite [Not Recovered/Not Resolved]
  - Rash pruritic [Not Recovered/Not Resolved]
  - Cerebral infarction [Fatal]
  - Hypoglycaemia [Recovered/Resolved]
  - Diarrhoea [Not Recovered/Not Resolved]

NARRATIVE: CASE EVENT DATE: 20140523
